FAERS Safety Report 18652063 (Version 1)
Quarter: 2020Q4

REPORT INFORMATION
  Report Type: Spontaneous
  Country: US (occurrence: US)
  Receive Date: 20201223
  Receipt Date: 20201223
  Transmission Date: 20210114
  Serious: No
  Sender: FDA-Public Use
  Company Number: US-RECORDATI RARE DISEASES-2103376

PATIENT
  Age: 49 Year
  Sex: Female

DRUGS (9)
  1. ATORVASTATIN [Concomitant]
     Active Substance: ATORVASTATIN
  2. VITAMIN B12 [Concomitant]
     Active Substance: CYANOCOBALAMIN
  3. ELIQUIS [Concomitant]
     Active Substance: APIXABAN
  4. GABAPENTIN. [Concomitant]
     Active Substance: GABAPENTIN
  5. ISTURISA [Suspect]
     Active Substance: OSILODROSTAT PHOSPHATE
     Indication: PITUITARY-DEPENDENT CUSHING^S SYNDROME
     Dates: start: 20201006
  6. METFORMIN [Concomitant]
     Active Substance: METFORMIN HYDROCHLORIDE
  7. LISINOPRIL. [Concomitant]
     Active Substance: LISINOPRIL
  8. VITAMINS NOS [Concomitant]
     Active Substance: VITAMINS
  9. DULOXETINE. [Concomitant]
     Active Substance: DULOXETINE

REACTIONS (6)
  - Blood pressure increased [Unknown]
  - Blood glucose increased [Unknown]
  - Irregular sleep wake rhythm disorder [Unknown]
  - Fatigue [Unknown]
  - Oedema peripheral [Unknown]
  - Heart rate increased [Unknown]

NARRATIVE: CASE EVENT DATE: 202010
